FAERS Safety Report 24397653 (Version 2)
Quarter: 2024Q4

REPORT INFORMATION
  Report Type: Spontaneous
  Country: FR (occurrence: FR)
  Receive Date: 20241004
  Receipt Date: 20241018
  Transmission Date: 20250115
  Serious: Yes (Death)
  Sender: TEVA
  Company Number: None

PATIENT
  Age: 64 Year
  Sex: Male

DRUGS (4)
  1. DOCETAXEL [Suspect]
     Active Substance: DOCETAXEL
     Indication: Prostate cancer
     Dosage: NOT KNOWN
     Route: 042
     Dates: start: 20240228, end: 20240507
  2. ENANTONE LP [Suspect]
     Active Substance: LEUPROLIDE ACETATE
     Indication: Prostate cancer
     Dosage: 1 INJECTION/3 MONTHS: MICROSPHERES AND SOLUTION FOR PARENTERAL USE (SC OR IM) SUSTAINED RELEASE
     Route: 051
     Dates: start: 20240417, end: 20240611
  3. NUBEQA [Suspect]
     Active Substance: DAROLUTAMIDE
     Indication: Prostate cancer
     Dosage: NOT KNOWN
     Route: 048
     Dates: start: 20240221, end: 20240611
  4. ELIQUIS [Suspect]
     Active Substance: APIXABAN
     Indication: Deep vein thrombosis
     Dosage: (5 MG 2X/DAY)
     Route: 048
     Dates: start: 202307, end: 20240628

REACTIONS (1)
  - Interstitial lung disease [Fatal]

NARRATIVE: CASE EVENT DATE: 20240527
